FAERS Safety Report 20142704 (Version 1)
Quarter: 2021Q4

REPORT INFORMATION
  Report Type: Spontaneous
  Country: US (occurrence: None)
  Receive Date: 20211202
  Receipt Date: 20211202
  Transmission Date: 20220303
  Serious: No
  Sender: FDA-Public Use
  Company Number: US-ROCHE-2888918

PATIENT
  Sex: Female
  Weight: 61.744 kg

DRUGS (2)
  1. LUCENTIS [Suspect]
     Active Substance: RANIBIZUMAB
     Indication: Macular degeneration
     Dosage: INJECTION ;ONGOING: UNKNOWN
     Route: 065
     Dates: start: 2011
  2. EYLEA [Concomitant]
     Active Substance: AFLIBERCEPT

REACTIONS (5)
  - Vitreous floaters [Not Recovered/Not Resolved]
  - Off label use [Unknown]
  - Drug hypersensitivity [Unknown]
  - Visual field defect [Not Recovered/Not Resolved]
  - Ophthalmological examination abnormal [Not Recovered/Not Resolved]

NARRATIVE: CASE EVENT DATE: 20110101
